FAERS Safety Report 9325496 (Version 1)
Quarter: 2013Q2

REPORT INFORMATION
  Report Type: Spontaneous
  Country: US (occurrence: None)
  Receive Date: 20130531
  Receipt Date: 20130531
  Transmission Date: 20140414
  Serious: Yes (Hospitalization)
  Sender: FDA-Public Use
  Company Number: None

PATIENT
  Age: 73 Year
  Sex: Male
  Weight: 90.1 kg

DRUGS (2)
  1. METFORMIN [Suspect]
     Indication: PANCREATIC CARCINOMA
     Route: 048
     Dates: start: 20130509, end: 20130520
  2. FOLFOX-6 [Concomitant]

REACTIONS (8)
  - Nausea [None]
  - Chest discomfort [None]
  - Chest pain [None]
  - Feeling abnormal [None]
  - Cardiomegaly [None]
  - Atelectasis [None]
  - Pleural effusion [None]
  - Lung infiltration [None]
